FAERS Safety Report 4961576-9 (Version None)
Quarter: 2006Q1

REPORT INFORMATION
  Report Type: 
  Country: None (occurrence: None)
  Receive Date: 20060329
  Receipt Date: 20060227
  Transmission Date: 20060701
  Serious: Yes (Hospitalization)
  Sender: FDA-Public Use
  Company Number: 2006018884

PATIENT
  Age: 55 Year
  Sex: Female
  Weight: 118 kg

DRUGS (6)
  1. SUTENT [Suspect]
     Indication: RENAL CELL CARCINOMA STAGE UNSPECIFIED
     Dosage: 50 MG (50 MG, INTERVAL:  DAILY), ORAL
     Route: 048
     Dates: start: 20060203, end: 20060224
  2. WARFARIN [Concomitant]
  3. IRBESARTAN [Concomitant]
  4. PARACETAMOL [Concomitant]
  5. DIGOXIN [Concomitant]
  6. ENOXAPARIN SODIUM [Concomitant]

REACTIONS (4)
  - CHEST DISCOMFORT [None]
  - DYSPNOEA EXERTIONAL [None]
  - INTERNATIONAL NORMALISED RATIO INCREASED [None]
  - PLEURAL EFFUSION [None]
